FAERS Safety Report 17108738 (Version 3)
Quarter: 2020Q2

REPORT INFORMATION
  Report Type: Spontaneous
  Country: JP (occurrence: JP)
  Receive Date: 20191203
  Receipt Date: 20200423
  Transmission Date: 20200713
  Serious: Yes (Hospitalization, Other)
  Sender: FDA-Public Use
  Company Number: JP-SA-2019SA308197

PATIENT
  Age: 78 Year
  Sex: Male

DRUGS (5)
  1. LANTUS SOLOSTAR [Suspect]
     Active Substance: INSULIN GLARGINE
     Indication: TYPE 2 DIABETES MELLITUS
     Dosage: 13 U/DAY
     Route: 058
  2. LANTUS SOLOSTAR [Suspect]
     Active Substance: INSULIN GLARGINE
     Indication: DIABETES MELLITUS MANAGEMENT
     Dosage: UNK
     Route: 058
     Dates: start: 2019, end: 2019
  3. LANTUS SOLOSTAR [Suspect]
     Active Substance: INSULIN GLARGINE
     Dosage: UNK
     Route: 058
     Dates: start: 2019
  4. APLEWAY [Suspect]
     Active Substance: TOFOGLIFLOZIN
     Indication: TYPE 2 DIABETES MELLITUS
     Dosage: 20 MG, QD
     Route: 048
  5. APLEWAY [Suspect]
     Active Substance: TOFOGLIFLOZIN
     Dosage: UNK
     Route: 048
     Dates: start: 20190413

REACTIONS (9)
  - Nausea [Recovered/Resolved]
  - Hyperglycaemia [Recovered/Resolved]
  - Weight decreased [Recovered/Resolved]
  - Diabetic ketosis [Recovered/Resolved]
  - Decreased appetite [Recovered/Resolved]
  - Urine ketone body present [Recovered/Resolved]
  - Cutaneous amyloidosis [Not Recovered/Not Resolved]
  - Hyperglycaemia [Recovered/Resolved]
  - Vomiting [Recovered/Resolved]

NARRATIVE: CASE EVENT DATE: 2019
